FAERS Safety Report 8917757 (Version 2)
Quarter: 2012Q4

REPORT INFORMATION
  Report Type: Report from Study
  Country: DE (occurrence: DE)
  Receive Date: 20121120
  Receipt Date: 20121126
  Transmission Date: 20130627
  Serious: Yes (Hospitalization)
  Sender: FDA-Public Use
  Company Number: DE-CELGENEUS-062-50794-12111765

PATIENT
  Age: 71 Year
  Sex: Male

DRUGS (2)
  1. VIDAZA [Suspect]
     Indication: MDS
     Route: 058
     Dates: start: 20110816, end: 20110822
  2. VIDAZA [Suspect]
     Route: 065
     Dates: start: 201109, end: 201109

REACTIONS (1)
  - Vertigo [Recovered/Resolved]
